FAERS Safety Report 9445186 (Version 4)
Quarter: 2013Q4

REPORT INFORMATION
  Report Type: Spontaneous
  Country: US (occurrence: US)
  Receive Date: 20130807
  Receipt Date: 20131223
  Transmission Date: 20140711
  Serious: Yes (Hospitalization)
  Sender: FDA-Public Use
  Company Number: US-GLAXOSMITHKLINE-A1036504A

PATIENT
  Age: 56 Year
  Sex: Male
  Weight: 94.1 kg

DRUGS (6)
  1. ARIXTRA [Suspect]
     Indication: DEEP VEIN THROMBOSIS
     Dosage: 7.5MG PER DAY
     Route: 058
     Dates: start: 20120424
  2. SYNTHROID [Concomitant]
  3. MORPHINE SULFATE [Concomitant]
  4. OXYCODONE [Concomitant]
  5. ALBUTEROL [Concomitant]
  6. CHERATUSSIN [Concomitant]

REACTIONS (15)
  - Thrombosis [Unknown]
  - Drug ineffective [Recovering/Resolving]
  - Deep vein thrombosis [Unknown]
  - Pulmonary embolism [Unknown]
  - Tendon discomfort [Unknown]
  - Limb discomfort [Unknown]
  - Emotional distress [Unknown]
  - Asthenia [Unknown]
  - Fatigue [Unknown]
  - Haemorrhagic disorder [Unknown]
  - Respiratory tract infection [Unknown]
  - Cough [Unknown]
  - Local swelling [Unknown]
  - Haemorrhoids [Unknown]
  - Haematochezia [Unknown]
